FAERS Safety Report 5854938-9 (Version None)
Quarter: 2008Q3

REPORT INFORMATION
  Report Type: 
  Country: None (occurrence: None)
  Receive Date: 20080822
  Receipt Date: 20080319
  Transmission Date: 20090109
  Serious: No
  Sender: FDA-Public Use
  Company Number: US-ABBOTT-08P-163-0443603-00

PATIENT
  Sex: Female

DRUGS (2)
  1. SYNTHROID [Suspect]
     Indication: HYPOTHYROIDISM
     Route: 048
     Dates: start: 20030101
  2. SYNTHROID [Suspect]
     Dosage: 112 MCG + 50 MCG DAILY - CONSUMER TERMINATED CONVERSATION
     Route: 048

REACTIONS (4)
  - BLOOD THYROID STIMULATING HORMONE DECREASED [None]
  - PALPITATIONS [None]
  - THYROXINE INCREASED [None]
  - WEIGHT INCREASED [None]
